FAERS Safety Report 5670113-5 (Version None)
Quarter: 2008Q1

REPORT INFORMATION
  Report Type: 
  Country: None (occurrence: None)
  Receive Date: 20080317
  Receipt Date: 20080304
  Transmission Date: 20080703
  Serious: Yes (Other)
  Sender: FDA-Public Use
  Company Number: AU-AMGEN-QUU256167

PATIENT
  Age: 44 Year
  Sex: Female
  Weight: 53 kg

DRUGS (4)
  1. NEULASTA [Suspect]
     Indication: CHEMOTHERAPY
     Route: 058
     Dates: start: 20070822
  2. CYTARABINE [Concomitant]
     Route: 042
     Dates: start: 20070815
  3. IDARUBICIN HCL [Concomitant]
     Route: 042
     Dates: start: 20070815, end: 20071006
  4. ETOPOSIDE [Concomitant]
     Route: 042
     Dates: start: 20070815, end: 20071010

REACTIONS (2)
  - DRUG INEFFECTIVE [None]
  - FEBRILE NEUTROPENIA [None]
